FAERS Safety Report 4944110-9 (Version None)
Quarter: 2006Q1

REPORT INFORMATION
  Report Type: 
  Country: None (occurrence: None)
  Receive Date: 20060315
  Receipt Date: 20060307
  Transmission Date: 20060701
  Serious: Yes (Other)
  Sender: FDA-Public Use
  Company Number: 2006UW03871

PATIENT
  Age: 64 Year
  Sex: Female
  Weight: 81.6 kg

DRUGS (7)
  1. NEXIUM [Suspect]
     Indication: GASTROOESOPHAGEAL REFLUX DISEASE
     Dosage: TWO NEXIUM A DAY
     Route: 048
  2. MICARDIS [Concomitant]
  3. TOPROL-XL [Concomitant]
     Route: 048
  4. CLONIDINE [Concomitant]
  5. PREMARIN [Concomitant]
  6. NAPROSYN [Concomitant]
  7. CLARITIN [Concomitant]

REACTIONS (1)
  - ADENOCARCINOMA [None]
